FAERS Safety Report 11507314 (Version 1)
Quarter: 2015Q3

REPORT INFORMATION
  Report Type: Report from Study
  Country: US (occurrence: US)
  Receive Date: 20150915
  Receipt Date: 20150915
  Transmission Date: 20151125
  Serious: No
  Sender: FDA-Public Use
  Company Number: US-AMGEN-USASL2015093224

PATIENT
  Age: 62 Year
  Sex: Female

DRUGS (1)
  1. ENBREL [Suspect]
     Active Substance: ETANERCEPT
     Indication: RHEUMATOID ARTHRITIS
     Dosage: UNK UNK, UNK
     Route: 065
     Dates: start: 20150828

REACTIONS (5)
  - Malaise [Unknown]
  - Ear pain [Unknown]
  - Ear discomfort [Unknown]
  - Abdominal discomfort [Unknown]
  - No therapeutic response [Unknown]

NARRATIVE: CASE EVENT DATE: 2015
